FAERS Safety Report 4692771-4 (Version None)
Quarter: 2005Q2

REPORT INFORMATION
  Report Type: 
  Country: None (occurrence: None)
  Receive Date: 20050617
  Receipt Date: 20041012
  Transmission Date: 20051028
  Serious: Yes (Other)
  Sender: FDA-Public Use
  Company Number: PHEH2004US11025

PATIENT
  Age: 38 Year
  Sex: Female
  Weight: 86 kg

DRUGS (4)
  1. GEMZAR [Concomitant]
  2. ZOMETA [Suspect]
     Indication: METASTASES TO BONE
     Dosage: 4MG QMO
     Route: 042
     Dates: start: 20020328
  3. TAXOTERE [Concomitant]
     Indication: METASTASES TO BONE
     Dosage: 35 MG/KG, UNK
     Dates: start: 20040101, end: 20040801
  4. FASLODEX [Concomitant]
     Indication: METASTASES TO BONE

REACTIONS (4)
  - CHEST PAIN [None]
  - MALIGNANT NEOPLASM PROGRESSION [None]
  - OSTEONECROSIS [None]
  - PAIN IN JAW [None]
